FAERS Safety Report 6051431-8 (Version None)
Quarter: 2009Q1

REPORT INFORMATION
  Report Type: 
  Country: None (occurrence: None)
  Receive Date: 20090121
  Receipt Date: 20090121
  Transmission Date: 20090719
  Serious: No
  Sender: FDA-Public Use
  Company Number: None

PATIENT

DRUGS (1)
  1. KENALOG [Suspect]
     Indication: CYST
     Dates: start: 20081002, end: 20081002

REACTIONS (2)
  - EMOTIONAL DISTRESS [None]
  - SKIN DISORDER [None]
